FAERS Safety Report 7897185-1 (Version None)
Quarter: 2011Q4

REPORT INFORMATION
  Report Type: 
  Country: None (occurrence: None)
  Receive Date: 20111107
  Receipt Date: 20111024
  Transmission Date: 20120403
  Serious: Yes (Hospitalization)
  Sender: FDA-Public Use
  Company Number: US-ELI_LILLY_AND_COMPANY-US201110006481

PATIENT
  Sex: Male

DRUGS (2)
  1. RISPERDAL [Concomitant]
     Dosage: 75 MG, UNK
  2. ZYPREXA [Suspect]
     Dosage: 45 MG, UNK

REACTIONS (3)
  - OVERDOSE [None]
  - HOSPITALISATION [None]
  - DRUG INEFFECTIVE [None]
